FAERS Safety Report 6115095-7 (Version None)
Quarter: 2009Q1

REPORT INFORMATION
  Report Type: 
  Country: None (occurrence: None)
  Receive Date: 20090313
  Receipt Date: 20090305
  Transmission Date: 20090719
  Serious: Yes (Life-Threatening)
  Sender: FDA-Public Use
  Company Number: B0564682A

PATIENT
  Age: 16 Year
  Sex: Female
  Weight: 58 kg

DRUGS (1)
  1. ZINACEF [Suspect]
     Indication: TRACHEITIS
     Route: 042
     Dates: start: 20090207, end: 20090207

REACTIONS (6)
  - BLOOD PRESSURE DECREASED [None]
  - CARDIAC ARREST [None]
  - DYSPNOEA [None]
  - OXYGEN SATURATION DECREASED [None]
  - SYNCOPE [None]
  - WRONG DRUG ADMINISTERED [None]
